FAERS Safety Report 12187603 (Version 2)
Quarter: 2017Q2

REPORT INFORMATION
  Report Type: Spontaneous
  Country: US (occurrence: US)
  Receive Date: 20160317
  Receipt Date: 20170515
  Transmission Date: 20170830
  Serious: Yes (Life-Threatening, Hospitalization, Other)
  Sender: FDA-Public Use
  Company Number: US-JNJFOC-20160313131

PATIENT
  Age: 51 Year
  Sex: Female

DRUGS (1)
  1. INVOKANA [Suspect]
     Active Substance: CANAGLIFLOZIN
     Indication: TYPE 2 DIABETES MELLITUS
     Route: 048
     Dates: start: 201310, end: 201311

REACTIONS (3)
  - Diabetic ketoacidosis [Recovering/Resolving]
  - Renal injury [Unknown]
  - Coma [Recovering/Resolving]

NARRATIVE: CASE EVENT DATE: 201311
